FAERS Safety Report 7407386-4 (Version None)
Quarter: 2011Q2

REPORT INFORMATION
  Report Type: 
  Country: None (occurrence: None)
  Receive Date: 20110411
  Receipt Date: 20110401
  Transmission Date: 20111010
  Serious: Yes (Hospitalization)
  Sender: FDA-Public Use
  Company Number: FR-MERCK-1103FRA00169

PATIENT
  Age: 61 Year
  Sex: Female
  Weight: 92 kg

DRUGS (4)
  1. FLUINDIONE [Concomitant]
     Indication: AGITATION
     Route: 048
  2. JANUVIA [Suspect]
     Indication: TYPE 2 DIABETES MELLITUS
     Route: 048
     Dates: start: 20101202, end: 20110101
  3. PRAVASTATIN SODIUM [Concomitant]
     Route: 065
  4. PERINDOPRIL ARGININE [Concomitant]
     Indication: HYPERTENSION
     Route: 048

REACTIONS (3)
  - URTICARIA [None]
  - PETECHIAE [None]
  - PYREXIA [None]
